FAERS Safety Report 21759516 (Version 1)
Quarter: 2022Q4

REPORT INFORMATION
  Report Type: Spontaneous
  Country: US (occurrence: None)
  Receive Date: 20221220
  Receipt Date: 20221220
  Transmission Date: 20230112
  Serious: Yes (Hospitalization)
  Sender: FDA-Public Use
  Company Number: None

PATIENT
  Sex: Male
  Weight: 86.5 kg

DRUGS (7)
  1. RITUXIMAB [Suspect]
     Active Substance: RITUXIMAB
     Dates: end: 20210816
  2. ATORVASTATIN [Concomitant]
     Active Substance: ATORVASTATIN
  3. MEDROL [Concomitant]
     Active Substance: METHYLPREDNISOLONE
  4. OMEPRAZOLE [Concomitant]
     Active Substance: OMEPRAZOLE
  5. VITAMIN C [Concomitant]
     Active Substance: ASCORBIC ACID
  6. ZITHROMAX [Concomitant]
     Active Substance: AZITHROMYCIN DIHYDRATE
  7. ZINC ACETATE [Concomitant]

REACTIONS (6)
  - Hypoxia [None]
  - Dyspnoea [None]
  - COVID-19 [None]
  - Myalgia [None]
  - COVID-19 pneumonia [None]
  - Bacterial infection [None]

NARRATIVE: CASE EVENT DATE: 20210825
